FAERS Safety Report 25214707 (Version 1)
Quarter: 2025Q2

REPORT INFORMATION
  Report Type: Spontaneous
  Country: US (occurrence: None)
  Receive Date: 20250417
  Receipt Date: 20250417
  Transmission Date: 20250717
  Serious: No
  Sender: FDA-CTU
  Company Number: None

PATIENT
  Age: 81 Year
  Sex: Male
  Weight: 104 kg

DRUGS (1)
  1. LINEZOLID [Suspect]
     Active Substance: LINEZOLID
     Indication: Arthritis infective
     Dates: end: 20241212

REACTIONS (3)
  - Anaemia [None]
  - Electrocardiogram QT prolonged [None]
  - Thrombocytopenia [None]

NARRATIVE: CASE EVENT DATE: 20241216
